FAERS Safety Report 20191323 (Version 1)
Quarter: 2021Q4

REPORT INFORMATION
  Report Type: Spontaneous
  Country: US (occurrence: None)
  Receive Date: 20211216
  Receipt Date: 20211216
  Transmission Date: 20220304
  Serious: Yes (Other)
  Sender: FDA-Public Use
  Company Number: US-MLMSERVICE-20211126-3240164-1

PATIENT
  Age: 82 Year
  Sex: Male

DRUGS (1)
  1. PREDNISONE [Suspect]
     Active Substance: PREDNISONE
     Indication: Thrombotic thrombocytopenic purpura
     Dosage: UNKNOWN
     Route: 065

REACTIONS (5)
  - Duodenitis [Recovering/Resolving]
  - Erosive oesophagitis [Recovering/Resolving]
  - Gastritis [Recovering/Resolving]
  - Colitis [Recovering/Resolving]
  - Strongyloidiasis [Recovering/Resolving]
